FAERS Safety Report 6647820-0 (Version None)
Quarter: 2010Q1

REPORT INFORMATION
  Report Type: 
  Country: None (occurrence: None)
  Receive Date: 20100318
  Receipt Date: 20100309
  Transmission Date: 20100710
  Serious: Yes (Disabling, Other)
  Sender: FDA-Public Use
  Company Number: OMPQ-NO-1003S-0165

PATIENT
  Age: 61 Year
  Sex: Female

DRUGS (1)
  1. OMNIPAQUE 140 [Suspect]
     Indication: INTERVERTEBRAL DISC OPERATION
     Dosage: SINGLE DOSE, INTRADISCAL
     Route: 024

REACTIONS (5)
  - APNOEA [None]
  - BRAIN INJURY [None]
  - COMA [None]
  - GRAND MAL CONVULSION [None]
  - QUADRIPLEGIA [None]
